FAERS Safety Report 16470764 (Version 1)
Quarter: 2019Q2

REPORT INFORMATION
  Report Type: Spontaneous
  Country: US (occurrence: US)
  Receive Date: 20190624
  Receipt Date: 20190624
  Transmission Date: 20190711
  Serious: Yes (Other)
  Sender: FDA-Public Use
  Company Number: US-TEVA-2019-US-1066012

PATIENT

DRUGS (1)
  1. LOSARTAN POTASSIUM. [Suspect]
     Active Substance: LOSARTAN POTASSIUM

REACTIONS (6)
  - Subcutaneous abscess [Unknown]
  - Tenderness [Unknown]
  - Ear infection [Unknown]
  - Swelling face [Unknown]
  - Vulval abscess [Unknown]
  - Haematoma [Unknown]

NARRATIVE: CASE EVENT DATE: 20170221
